FAERS Safety Report 15841601 (Version 5)
Quarter: 2019Q4

REPORT INFORMATION
  Report Type: Report from Study
  Country: IL (occurrence: IL)
  Receive Date: 20190118
  Receipt Date: 20191106
  Transmission Date: 20200122
  Serious: Yes (Hospitalization)
  Sender: FDA-Public Use
  Company Number: IL-ROCHE-2238757

PATIENT
  Age: 69 Year
  Sex: Female
  Weight: 56.3 kg

DRUGS (17)
  1. PACLITAXEL. [Suspect]
     Active Substance: PACLITAXEL
     Indication: OVARIAN CANCER
     Dosage: DATE OF MOST RECENT DOSE (280 MG) OF PACLITAXEL PRIOR TO SAE ONSET: 18/DEC/2018
     Route: 042
     Dates: start: 20181218
  2. ATEZOLIZUMAB. [Suspect]
     Active Substance: ATEZOLIZUMAB
     Indication: OVARIAN CANCER
     Dosage: DATE OF MOST RECENT DOSE OF ATEZOLIZUMAB PRIOR TO SAE ONSET: 18/DEC/2018
     Route: 042
     Dates: start: 20181218
  3. CARBOPLATIN. [Suspect]
     Active Substance: CARBOPLATIN
     Indication: OVARIAN CANCER
     Dosage: CARBOPLATIN AT A DOSE TO ACHIEVE A TARGET AREA UNDER THE CURVE (AUC) OF 6 (MG/ML/MIN).?DATE OF MOST
     Route: 042
     Dates: start: 20181218
  4. CARDILOC [Concomitant]
     Active Substance: BISOPROLOL FUMARATE
     Indication: SUPRAVENTRICULAR TACHYCARDIA
     Route: 065
     Dates: start: 201806
  5. DEXACORT [DEXAMETHASONE] [Concomitant]
     Route: 065
     Dates: start: 20181218, end: 20190402
  6. CALCIUM 600+D3 [Concomitant]
     Active Substance: CALCIUM CARBONATE\VITAMIN D
     Indication: OSTEOARTHRITIS
     Route: 065
     Dates: start: 2016
  7. PALONOSETRON. [Concomitant]
     Active Substance: PALONOSETRON HYDROCHLORIDE
     Route: 065
     Dates: start: 20181218, end: 20190402
  8. OMEPRADEX [Concomitant]
     Active Substance: OMEPRAZOLE
     Indication: DYSPEPSIA
     Route: 065
     Dates: start: 20190125
  9. MACRODANTIN [Concomitant]
     Active Substance: NITROFURANTOIN
     Indication: URINARY TRACT INFECTION
     Route: 065
     Dates: start: 20190210, end: 20190216
  10. GASTRO [FAMOTIDINE] [Concomitant]
     Indication: DYSPEPSIA
     Route: 065
     Dates: start: 20190117, end: 20190124
  11. MIRTAZAPINE. [Concomitant]
     Active Substance: MIRTAZAPINE
     Indication: DEPRESSION
     Route: 065
     Dates: start: 20190429
  12. BONDORMIN [Concomitant]
     Active Substance: BROTIZOLAM
     Indication: INSOMNIA
     Route: 065
     Dates: start: 20181120
  13. AUGMENTIN [Concomitant]
     Active Substance: AMOXICILLIN\CLAVULANATE POTASSIUM
     Indication: PYREXIA
     Route: 065
     Dates: start: 20181231, end: 20190105
  14. ZANTAC [Concomitant]
     Active Substance: RANITIDINE HYDROCHLORIDE
     Route: 065
     Dates: start: 20181218, end: 20190402
  15. LORATADIN [Concomitant]
     Active Substance: LORATADINE
     Route: 065
     Dates: start: 20181218, end: 20190402
  16. DERMACOMBIN [Concomitant]
     Indication: APHTHOUS ULCER
     Route: 065
     Dates: start: 20190121
  17. AMIKIN [Concomitant]
     Active Substance: AMIKACIN SULFATE
     Indication: PYREXIA
     Route: 065
     Dates: start: 20181231, end: 20190104

REACTIONS (2)
  - Ovarian vein thrombosis [Recovered/Resolved]
  - Systemic immune activation [Recovered/Resolved]

NARRATIVE: CASE EVENT DATE: 20181231
